FAERS Safety Report 7988136-X (Version None)
Quarter: 2011Q4

REPORT INFORMATION
  Report Type: 
  Country: None (occurrence: None)
  Receive Date: 20111216
  Receipt Date: 20110616
  Transmission Date: 20120403
  Serious: No
  Sender: FDA-Public Use
  Company Number: US-BRISTOL-MYERS SQUIBB COMPANY-15838352

PATIENT
  Age: 52 Year
  Sex: Female

DRUGS (4)
  1. ABILIFY [Suspect]
  2. LEVOTHYROXINE SODIUM [Concomitant]
  3. SEROQUEL [Concomitant]
  4. WELLBUTRIN [Concomitant]

REACTIONS (1)
  - SKIN HYPERPIGMENTATION [None]
